FAERS Safety Report 15825780 (Version 1)
Quarter: 2018Q4

REPORT INFORMATION
  Report Type: Spontaneous
  Country: US (occurrence: US)
  Receive Date: 20181217
  Receipt Date: 20181217
  Transmission Date: 20190205
  Serious: Yes (Hospitalization)
  Sender: FDA-Public Use
  Company Number: None

PATIENT
  Age: 66 Year
  Sex: Female
  Weight: 94.3 kg

DRUGS (5)
  1. DAUNORUBICIN [Suspect]
     Active Substance: DAUNORUBICIN
     Dates: end: 20181130
  2. DEXAMETHASONE. [Suspect]
     Active Substance: DEXAMETHASONE
     Dates: end: 20181129
  3. METHOTREXATE. [Suspect]
     Active Substance: METHOTREXATE
  4. VINCRISTINE [Suspect]
     Active Substance: VINCRISTINE
     Dates: end: 20181130
  5. METHOTREXATE. [Suspect]
     Active Substance: METHOTREXATE
     Dates: end: 20181206

REACTIONS (7)
  - Proctalgia [None]
  - Necrotising fasciitis [None]
  - Anal fistula [None]
  - Perirectal abscess [None]
  - Therapy cessation [None]
  - Condition aggravated [None]
  - Haemorrhoids [None]

NARRATIVE: CASE EVENT DATE: 20181207
